FAERS Safety Report 10622169 (Version 3)
Quarter: 2015Q1

REPORT INFORMATION
  Report Type: Report from Study
  Country: GB (occurrence: GB)
  Receive Date: 20141203
  Receipt Date: 20150205
  Transmission Date: 20150720
  Serious: Yes (Other)
  Sender: FDA-Public Use
  Company Number: PHFR2014GB005580

PATIENT
  Age: 49 Year
  Sex: Female

DRUGS (1)
  1. GILENYA [Suspect]
     Active Substance: FINGOLIMOD HYDROCHLORIDE
     Indication: MULTIPLE SCLEROSIS
     Dosage: 0.5 MG, UNK
     Route: 048
     Dates: start: 20140722, end: 20140731

REACTIONS (12)
  - Multiple sclerosis relapse [Recovering/Resolving]
  - Paralysis [Recovering/Resolving]
  - Mobility decreased [Recovering/Resolving]
  - Depressed mood [Recovered/Resolved]
  - Suicidal ideation [Recovered/Resolved]
  - Malaise [Recovered/Resolved]
  - Paresis [Unknown]
  - Nausea [Recovered/Resolved]
  - Pain [Recovering/Resolving]
  - VIIth nerve paralysis [Recovering/Resolving]
  - Vision blurred [Unknown]
  - Coordination abnormal [Unknown]

NARRATIVE: CASE EVENT DATE: 20140726
